FAERS Safety Report 23921310 (Version 1)
Quarter: 2024Q2

REPORT INFORMATION
  Report Type: Spontaneous
  Country: US (occurrence: None)
  Receive Date: 20240530
  Receipt Date: 20240530
  Transmission Date: 20240716
  Serious: Yes (Hospitalization)
  Sender: FDA-Public Use
  Company Number: None

PATIENT
  Age: 72 Year
  Sex: Female
  Weight: 74.93 kg

DRUGS (1)
  1. TRUQAP [Suspect]
     Active Substance: CAPIVASERTIB
     Indication: Neoplasm malignant
     Dosage: 40 MG/MG BID ORAL
     Route: 048
     Dates: start: 20240401

REACTIONS (2)
  - Fatigue [None]
  - Paralysis [None]

NARRATIVE: CASE EVENT DATE: 20240418
